FAERS Safety Report 16158742 (Version 1)
Quarter: 2019Q2

REPORT INFORMATION
  Report Type: Spontaneous
  Country: US (occurrence: US)
  Receive Date: 20190301
  Receipt Date: 20190301
  Transmission Date: 20190711
  Serious: No
  Sender: FDA-Public Use
  Company Number: None

PATIENT
  Age: 73 Year
  Sex: Female
  Weight: 87.09 kg

DRUGS (2)
  1. CIMZIA [Suspect]
     Active Substance: CERTOLIZUMAB PEGOL
     Indication: RHEUMATOID FACTOR POSITIVE
     Dosage: ?          OTHER FREQUENCY:AT WEEKS 0,2 /T/4;?
     Route: 058
     Dates: start: 201901
  2. CIMZIA [Suspect]
     Active Substance: CERTOLIZUMAB PEGOL
     Indication: RHEUMATOID ARTHRITIS
     Dosage: ?          OTHER FREQUENCY:AT WEEKS 0,2 /T/4;?
     Route: 058
     Dates: start: 201901

REACTIONS (2)
  - Hyperkeratosis [None]
  - Nail disorder [None]
